FAERS Safety Report 10788491 (Version 1)
Quarter: 2015Q1

REPORT INFORMATION
  Report Type: Spontaneous
  Country: US (occurrence: None)
  Receive Date: 20150210
  Receipt Date: 20150210
  Transmission Date: 20150721
  Serious: Yes (Other)
  Sender: FDA-Public Use
  Company Number: 2015VER00057

PATIENT
  Age: 17 Year
  Sex: Male
  Weight: 84.8 kg

DRUGS (3)
  1. MYORISAN [Suspect]
     Active Substance: ISOTRETINOIN
     Indication: ACNE PUSTULAR
     Route: 048
     Dates: start: 20150121, end: 20150126
  2. LORATADINE. [Concomitant]
     Active Substance: LORATADINE
  3. MYORISAN [Suspect]
     Active Substance: ISOTRETINOIN
     Indication: ACNE PUSTULAR
     Route: 048
     Dates: start: 20140520, end: 20150120

REACTIONS (1)
  - Depression [None]
